FAERS Safety Report 20585766 (Version 1)
Quarter: 2022Q1

REPORT INFORMATION
  Report Type: Spontaneous
  Country: US (occurrence: US)
  Receive Date: 20220312
  Receipt Date: 20220312
  Transmission Date: 20220423
  Serious: No
  Sender: FDA-Public Use
  Company Number: US-TEVA-2022-US-2008632

PATIENT
  Sex: Female

DRUGS (2)
  1. ALPRAZOLAM [Suspect]
     Active Substance: ALPRAZOLAM
     Indication: Anxiety
     Route: 065
     Dates: start: 202011
  2. ALPRAZOLAM [Suspect]
     Active Substance: ALPRAZOLAM
     Indication: Mast cell activation syndrome

REACTIONS (12)
  - Tachycardia [Unknown]
  - Paraesthesia [Unknown]
  - Dyspnoea [Unknown]
  - Burning sensation [Unknown]
  - Affective disorder [Unknown]
  - Erythema [Unknown]
  - Feeling hot [Unknown]
  - Dyspepsia [Unknown]
  - Insomnia [Unknown]
  - Nervousness [Unknown]
  - Irritability [Unknown]
  - Anxiety [Unknown]
